FAERS Safety Report 7424184-6 (Version None)
Quarter: 2011Q2

REPORT INFORMATION
  Report Type: 
  Country: None (occurrence: None)
  Receive Date: 20110419
  Receipt Date: 20110412
  Transmission Date: 20111010
  Serious: Yes (Other)
  Sender: FDA-Public Use
  Company Number: US-MERCK-1104USA01934

PATIENT
  Age: 58 Year
  Sex: Female

DRUGS (1)
  1. FOSAMAX [Suspect]
     Route: 048
     Dates: start: 19990101, end: 20090101

REACTIONS (2)
  - FEMUR FRACTURE [None]
  - ADVERSE EVENT [None]
